FAERS Safety Report 19025138 (Version 2)
Quarter: 2021Q2

REPORT INFORMATION
  Report Type: Spontaneous
  Country: US (occurrence: US)
  Receive Date: 20210318
  Receipt Date: 20210413
  Transmission Date: 20210717
  Serious: No
  Sender: FDA-Public Use
  Company Number: US-ASTRAZENECA-2021A077893

PATIENT
  Sex: Male
  Weight: 124.7 kg

DRUGS (2)
  1. SYMBICORT [Suspect]
     Active Substance: BUDESONIDE\FORMOTEROL FUMARATE DIHYDRATE
     Indication: CARDIAC FAILURE CONGESTIVE
     Dosage: 160/4.5MCG 2 PUFFS TWICE A DAY, 120 DOES
     Route: 055
  2. METOPROLOL UNSPECIFIED [Suspect]
     Active Substance: METOPROLOL
     Dosage: 100.0MG UNKNOWN
     Route: 065

REACTIONS (4)
  - Intentional device misuse [Unknown]
  - Device failure [Unknown]
  - Weight decreased [Unknown]
  - Device use issue [Unknown]
